FAERS Safety Report 19252027 (Version 1)
Quarter: 2021Q2

REPORT INFORMATION
  Report Type: Spontaneous
  Country: US (occurrence: US)
  Receive Date: 20210512
  Receipt Date: 20210512
  Transmission Date: 20210717
  Serious: No
  Sender: FDA-Public Use
  Company Number: None

PATIENT
  Age: 60 Year
  Sex: Female
  Weight: 60.75 kg

DRUGS (9)
  1. VITAMIN B COMPLEX [Concomitant]
     Active Substance: CYANOCOBALAMIN\DEXPANTHENOL\NIACINAMIDE\PYRIDOXINE HYDROCHLORIDE\RIBOFLAVIN 5^-PHOSPHATE SODIUM\THIAMINE HYDROCHLORIDE\VITAMIN B COMPLEX
  2. BIOTIN [Concomitant]
     Active Substance: BIOTIN
  3. DIAZEPAM. [Concomitant]
     Active Substance: DIAZEPAM
  4. VITAMIN B12 [Concomitant]
     Active Substance: CYANOCOBALAMIN
  5. VITAMIN A [Concomitant]
     Active Substance: VITAMIN A
  6. LEVOTHYROXINE. [Concomitant]
     Active Substance: LEVOTHYROXINE
  7. VITAMIN E [Concomitant]
     Active Substance: .ALPHA.-TOCOPHEROL
  8. REPATHA [Suspect]
     Active Substance: EVOLOCUMAB
     Indication: TYPE IIA HYPERLIPIDAEMIA
     Dosage: ?          QUANTITY:1 INJECTION;OTHER FREQUENCY:EVERY 14 DAYS;?
     Route: 058
     Dates: start: 20210425, end: 20210425
  9. PREDNISONE. [Concomitant]
     Active Substance: PREDNISONE

REACTIONS (6)
  - Burning sensation [None]
  - Poor quality sleep [None]
  - Condition aggravated [None]
  - Stiff person syndrome [None]
  - Fatigue [None]
  - Musculoskeletal stiffness [None]

NARRATIVE: CASE EVENT DATE: 20210427
